FAERS Safety Report 8554451-4 (Version None)
Quarter: 2012Q3

REPORT INFORMATION
  Report Type: 
  Country: None (occurrence: None)
  Receive Date: 20120731
  Receipt Date: 20120723
  Transmission Date: 20120928
  Serious: Yes (Disabling)
  Sender: FDA-Public Use
  Company Number: US-009507513-1207USA009830

PATIENT

DRUGS (1)
  1. ZOCOR [Suspect]
     Route: 048

REACTIONS (2)
  - MYALGIA [None]
  - LIGAMENT DISORDER [None]
